FAERS Safety Report 8524656-7 (Version None)
Quarter: 2012Q3

REPORT INFORMATION
  Report Type: 
  Country: None (occurrence: None)
  Receive Date: 20120720
  Receipt Date: 20120706
  Transmission Date: 20120928
  Serious: Yes (Other)
  Sender: FDA-Public Use
  Company Number: CZ-ROCHE-1085608

PATIENT
  Age: 39 Year

DRUGS (2)
  1. PEGINTERFERON ALFA-2A [Suspect]
     Indication: HEPATITIS C
  2. RIBAVIRIN [Suspect]
     Indication: HEPATITIS C
     Dosage: DOSAGE BY WEIGHT

REACTIONS (12)
  - ALTERED STATE OF CONSCIOUSNESS [None]
  - ARTHRITIS BACTERIAL [None]
  - THROMBOCYTOPENIA [None]
  - DEPRESSION [None]
  - THYROID DISORDER [None]
  - HYPERTHYROIDISM [None]
  - LEUKOPENIA [None]
  - WEIGHT DECREASED [None]
  - RASH [None]
  - CONVULSION [None]
  - VENOUS THROMBOSIS [None]
  - ANAEMIA [None]
